FAERS Safety Report 5636605-X (Version None)
Quarter: 2008Q1

REPORT INFORMATION
  Report Type: 
  Country: None (occurrence: None)
  Receive Date: 20080219
  Receipt Date: 20080205
  Transmission Date: 20080703
  Serious: Yes (Hospitalization)
  Sender: FDA-Public Use
  Company Number: NL-DEXPHARM-20080096

PATIENT
  Age: 70 Year
  Sex: Male

DRUGS (1)
  1. OMEPRAZOLE [Suspect]
     Dosage: ^OD^ { 40 MG MILLIGRAM(S) }

REACTIONS (1)
  - NEPHRITIS INTERSTITIAL [None]
